FAERS Safety Report 8570351-8 (Version None)
Quarter: 2012Q3

REPORT INFORMATION
  Report Type: 
  Country: None (occurrence: None)
  Receive Date: 20120803
  Receipt Date: 20120723
  Transmission Date: 20120928
  Serious: Yes (Hospitalization)
  Sender: FDA-Public Use
  Company Number: JP-ELI_LILLY_AND_COMPANY-JP201208000056

PATIENT
  Age: 65 Year
  Sex: Male
  Weight: 61 kg

DRUGS (9)
  1. METFORMIN HYDROCHLORIDE [Concomitant]
     Indication: DIABETES MELLITUS
     Dosage: UNK
     Dates: start: 20120202, end: 20120411
  2. EXENATIDE [Suspect]
     Dosage: 10 UG, BID
     Route: 058
     Dates: start: 20120405, end: 20120411
  3. AMARYL [Concomitant]
     Indication: DIABETES MELLITUS
     Dosage: UNK
     Route: 048
     Dates: start: 20120119, end: 20120411
  4. LIVALO [Concomitant]
     Indication: DYSLIPIDAEMIA
     Dosage: UNK
     Dates: start: 20120327, end: 20120411
  5. ARTIST [Concomitant]
     Indication: ANGINA PECTORIS
     Dosage: UNK
     Dates: start: 20120301, end: 20120411
  6. MAGNESIUM OXIDE [Concomitant]
     Indication: CONSTIPATION
     Dosage: UNK
     Dates: start: 20120301, end: 20120411
  7. AMOBAN [Concomitant]
     Indication: INSOMNIA
     Dosage: UNK
     Dates: start: 20120331, end: 20120411
  8. EXENATIDE [Suspect]
     Indication: DIABETES MELLITUS
     Dosage: 5 UG, BID
     Route: 058
     Dates: start: 20120330, end: 20120404
  9. FLOMOX [Concomitant]
     Indication: PROPHYLAXIS
     Dosage: UNK
     Dates: start: 20120410, end: 20120411

REACTIONS (1)
  - HEPATIC FUNCTION ABNORMAL [None]
